FAERS Safety Report 25415782 (Version 1)
Quarter: 2025Q2

REPORT INFORMATION
  Report Type: Spontaneous
  Country: ES (occurrence: ES)
  Receive Date: 20250610
  Receipt Date: 20250610
  Transmission Date: 20250716
  Serious: Yes (Hospitalization, Other)
  Sender: BOEHRINGER INGELHEIM
  Company Number: ES-BoehringerIngelheim-2025-BI-074316

PATIENT
  Age: 75 Year
  Sex: Male

DRUGS (4)
  1. OFEV [Suspect]
     Active Substance: NINTEDANIB
     Indication: Idiopathic pulmonary fibrosis
     Dosage: DISCONTINUED OFEV BY HIMSELF FOR AT LEAST 6 MONTHS
     Dates: start: 2021
  2. OFEV [Suspect]
     Active Substance: NINTEDANIB
     Dosage: STARTED APPROXIMATELY ONE YEAR AND A HALF AGO.?AT BREAKFAST AND AFTER DINNER.
  3. OMEPRAZOLE [Suspect]
     Active Substance: OMEPRAZOLE
     Indication: Dyspepsia
     Dosage: ON AN EMPTY STOMACH, AT MORNING
     Dates: start: 2025, end: 202505
  4. CIMETIDINE [Suspect]
     Active Substance: CIMETIDINE
     Indication: Dyspepsia
     Dosage: AT MORNING
     Dates: start: 2025, end: 202505

REACTIONS (9)
  - Laryngeal cancer [Recovered/Resolved]
  - Oropharyngeal discomfort [Recovered/Resolved]
  - Hiatus hernia [Not Recovered/Not Resolved]
  - Dyspepsia [Recovering/Resolving]
  - Abdominal pain lower [Recovering/Resolving]
  - Faeces soft [Recovering/Resolving]
  - Weight decreased [Not Recovered/Not Resolved]
  - Drug ineffective [Recovered/Resolved]
  - Blood cholesterol increased [Not Recovered/Not Resolved]

NARRATIVE: CASE EVENT DATE: 20231001
